FAERS Safety Report 6365216-6 (Version None)
Quarter: 2009Q3

REPORT INFORMATION
  Report Type: 
  Country: None (occurrence: None)
  Receive Date: 20090919
  Receipt Date: 20090811
  Transmission Date: 20100115
  Serious: No
  Sender: FDA-Public Use
  Company Number: US-ABBOTT-09P-163-0590772-00

PATIENT
  Sex: Male
  Weight: 81.72 kg

DRUGS (1)
  1. HUMIRA [Suspect]
     Indication: CROHN'S DISEASE
     Dates: start: 20090405

REACTIONS (5)
  - INFLAMMATION [None]
  - MALAISE [None]
  - PAIN [None]
  - POOR QUALITY DRUG ADMINISTERED [None]
  - VOMITING [None]
